FAERS Safety Report 13501746 (Version 1)
Quarter: 2017Q2

REPORT INFORMATION
  Report Type: Spontaneous
  Country: US (occurrence: US)
  Receive Date: 20170502
  Receipt Date: 20170502
  Transmission Date: 20170830
  Serious: Yes (Hospitalization, Other)
  Sender: FDA-Public Use
  Company Number: US-AUROBINDO-AUR-APL-2017-33187

PATIENT
  Age: 42 Year
  Sex: Male

DRUGS (10)
  1. DIVALPROEX 500MG [Suspect]
     Active Substance: DIVALPROEX SODIUM
     Indication: SCHIZOAFFECTIVE DISORDER BIPOLAR TYPE
     Dosage: 500 MG, IN MORNING
     Route: 065
  2. MIRTAZAPINE. [Concomitant]
     Active Substance: MIRTAZAPINE
     Indication: SCHIZOAFFECTIVE DISORDER BIPOLAR TYPE
     Dosage: 15 MG, UNK
     Route: 065
  3. LISINOPRIL. [Concomitant]
     Active Substance: LISINOPRIL
     Indication: PRODUCT USED FOR UNKNOWN INDICATION
     Dosage: 10 MG, UNK
     Route: 065
  4. DIVALPROEX 500MG [Suspect]
     Active Substance: DIVALPROEX SODIUM
     Dosage: 1000 MG, IN MORNING
  5. DIVALPROEX 500MG [Suspect]
     Active Substance: DIVALPROEX SODIUM
     Dosage: 1000 MG, AT NIGHT
  6. ARIPIPRAZOLE. [Concomitant]
     Active Substance: ARIPIPRAZOLE
     Indication: SCHIZOAFFECTIVE DISORDER BIPOLAR TYPE
     Dosage: 30 MG, UNK
     Route: 065
  7. LORAZEPAM. [Concomitant]
     Active Substance: LORAZEPAM
     Indication: CATATONIA
     Dosage: 2 MG, 3 TIMES A DAY
     Route: 065
  8. METFORMIN [Concomitant]
     Active Substance: METFORMIN HYDROCHLORIDE
     Indication: TYPE 2 DIABETES MELLITUS
     Dosage: 1000 MG, UNK
     Route: 065
  9. SIMVASTATIN. [Concomitant]
     Active Substance: SIMVASTATIN
     Indication: HYPERTENSION
     Dosage: 20 MG, UNK
     Route: 065
  10. DIVALPROEX 500MG [Suspect]
     Active Substance: DIVALPROEX SODIUM
     Dosage: 1500 MG, AT NIGHT

REACTIONS (2)
  - Hyperammonaemic encephalopathy [Recovered/Resolved]
  - Toxicity to various agents [Recovered/Resolved]
